FAERS Safety Report 23777718 (Version 1)
Quarter: 2024Q2

REPORT INFORMATION
  Report Type: Spontaneous
  Country: US (occurrence: US)
  Receive Date: 20240424
  Receipt Date: 20240424
  Transmission Date: 20240716
  Serious: Yes (Hospitalization)
  Sender: FDA-Public Use
  Company Number: US-AMNEAL PHARMACEUTICALS-2024-AMRX-01373

PATIENT

DRUGS (4)
  1. ITRACONAZOLE [Suspect]
     Active Substance: ITRACONAZOLE
     Indication: Product used for unknown indication
     Dosage: 5 MG/KG
     Route: 042
  2. ITRACONAZOLE [Suspect]
     Active Substance: ITRACONAZOLE
     Dosage: 6 MG/KG
     Route: 042
  3. MICAFUNGIN [Suspect]
     Active Substance: MICAFUNGIN SODIUM
     Indication: Aspergillus infection
     Dosage: 1 MG/ML, QD
     Route: 042
  4. FLUCONAZOLE [Concomitant]
     Active Substance: FLUCONAZOLE
     Indication: Antifungal prophylaxis
     Dosage: 2 MG/ML, 2 /WEEK
     Route: 042

REACTIONS (3)
  - Fracture [Unknown]
  - Bone density decreased [Unknown]
  - Hepatic enzyme increased [Unknown]
